FAERS Safety Report 24328874 (Version 1)
Quarter: 2024Q3

REPORT INFORMATION
  Report Type: Spontaneous
  Country: CN (occurrence: CN)
  Receive Date: 20240917
  Receipt Date: 20240917
  Transmission Date: 20241017
  Serious: Yes (Death, Other)
  Sender: JOHNSON AND JOHNSON
  Company Number: CN-JNJFOC-20240925819

PATIENT

DRUGS (1)
  1. CILTACABTAGENE AUTOLEUCEL [Suspect]
     Active Substance: CILTACABTAGENE AUTOLEUCEL
     Indication: Product used for unknown indication
     Route: 065

REACTIONS (66)
  - Pyrexia [Fatal]
  - Respiratory failure [Fatal]
  - Cytokine release syndrome [Fatal]
  - Immune effector cell-associated neurotoxicity syndrome [Fatal]
  - COVID-19 pneumonia [Fatal]
  - Sepsis [Fatal]
  - Haemophagocytic lymphohistiocytosis [Fatal]
  - Pneumonia [Fatal]
  - Neurotoxicity [Fatal]
  - Encephalopathy [Fatal]
  - Basal cell carcinoma [Unknown]
  - Neoplasm malignant [Unknown]
  - Large intestine perforation [Unknown]
  - Neoplasm malignant [Unknown]
  - Leukaemia [Unknown]
  - Prostate cancer [Unknown]
  - Transient ischaemic attack [Unknown]
  - Skin cancer [Unknown]
  - Malignant melanoma [Unknown]
  - Pancytopenia [Unknown]
  - Non-Hodgkin^s lymphoma [Unknown]
  - Chronic inflammatory demyelinating polyradiculoneuropathy [Unknown]
  - Haemorrhage intracranial [Unknown]
  - Alanine aminotransferase abnormal [Unknown]
  - Metapneumovirus pneumonia [Unknown]
  - Bell^s palsy [Unknown]
  - Haemophilus sepsis [Unknown]
  - Cranial nerve paralysis [Unknown]
  - Neutropenia [Unknown]
  - Myelodysplastic syndrome [Unknown]
  - Thrombocytopenia [Unknown]
  - Colitis [Unknown]
  - Facial paralysis [Unknown]
  - Peripheral motor neuropathy [Unknown]
  - Fatigue [Unknown]
  - Malaise [Unknown]
  - Diarrhoea [Unknown]
  - Vomiting [Unknown]
  - Tremor [Unknown]
  - Asthenia [Unknown]
  - COVID-19 [Unknown]
  - Dyspnoea [Unknown]
  - Hypotension [Unknown]
  - Confusional state [Unknown]
  - Pain [Unknown]
  - Platelet count decreased [Unknown]
  - Parkinsonism [Unknown]
  - Aspartate aminotransferase increased [Unknown]
  - Anaemia [Unknown]
  - Nausea [Unknown]
  - Blood lactate dehydrogenase increased [Unknown]
  - Infection [Unknown]
  - Facial paresis [Unknown]
  - Myalgia [Unknown]
  - Facial nerve disorder [Unknown]
  - Peripheral sensory neuropathy [Unknown]
  - Full blood count abnormal [Unknown]
  - Neoplasm [Unknown]
  - Haematological infection [Unknown]
  - IIIrd nerve disorder [Unknown]
  - Infusion related reaction [Unknown]
  - Adverse event [Unknown]
  - Product dose omission issue [Unknown]
  - Underdose [Unknown]
  - Physical product label issue [Unknown]
  - Product label issue [Unknown]
